FAERS Safety Report 13139955 (Version 2)
Quarter: 2017Q1

REPORT INFORMATION
  Report Type: Report from Study
  Country: CA (occurrence: CA)
  Receive Date: 20170123
  Receipt Date: 20170123
  Transmission Date: 20170428
  Serious: Yes (Hospitalization, Other)
  Sender: FDA-Public Use
  Company Number: CA-TEVA-731288ACC

PATIENT
  Age: 48 Year
  Sex: Female

DRUGS (3)
  1. VITAMIN D [Concomitant]
     Active Substance: CHOLECALCIFEROL
  2. COPAXONE [Suspect]
     Active Substance: GLATIRAMER ACETATE
     Indication: MULTIPLE SCLEROSIS
     Dosage: 20 MILLIGRAM/MILLILITERS DAILY;
     Route: 058
     Dates: start: 20120423
  3. MULTIVITAMIN [Concomitant]
     Active Substance: VITAMINS

REACTIONS (8)
  - Dyspnoea [Recovering/Resolving]
  - Speech disorder [Recovered/Resolved]
  - Productive cough [Recovered/Resolved]
  - Lung infection [Unknown]
  - Oxygen saturation decreased [Unknown]
  - Pneumonia [Unknown]
  - Sputum abnormal [Unknown]
  - Heart rate increased [Unknown]

NARRATIVE: CASE EVENT DATE: 201609
